FAERS Safety Report 7003180-7 (Version None)
Quarter: 2010Q3

REPORT INFORMATION
  Report Type: 
  Country: None (occurrence: None)
  Receive Date: 20100920
  Receipt Date: 20100506
  Transmission Date: 20110219
  Serious: No
  Sender: FDA-Public Use
  Company Number: US-ASTRAZENECA-2010SE20837

PATIENT
  Sex: Male
  Weight: 115.7 kg

DRUGS (10)
  1. SEROQUEL [Suspect]
     Indication: BIPOLAR DISORDER
     Dosage: ONE TO ONE AND HALF TABLET BEFORE BED TIME
     Route: 048
     Dates: start: 20030101
  2. SEROQUEL [Suspect]
     Route: 048
  3. SEROQUEL [Suspect]
     Route: 048
  4. SEROQUEL [Suspect]
     Route: 048
  5. PAXIL [Concomitant]
  6. LOTREL [Concomitant]
     Indication: BLOOD PRESSURE
  7. ASPIRIN [Concomitant]
  8. KLONOPIN [Concomitant]
  9. HYDROCHLOROTHIAZIDE [Concomitant]
  10. VITAMINS [Concomitant]

REACTIONS (4)
  - BLOOD GLUCOSE INCREASED [None]
  - RENAL DISORDER [None]
  - STRESS [None]
  - WEIGHT INCREASED [None]
